FAERS Safety Report 6734327-5 (Version None)
Quarter: 2010Q2

REPORT INFORMATION
  Report Type: 
  Country: None (occurrence: None)
  Receive Date: 20100520
  Receipt Date: 20100515
  Transmission Date: 20101027
  Serious: Yes (Death, Hospitalization)
  Sender: FDA-Public Use
  Company Number: IN-ELI_LILLY_AND_COMPANY-IN201005004327

PATIENT
  Age: 33 Year
  Sex: Female

DRUGS (3)
  1. XIGRIS [Suspect]
     Indication: SEPSIS
     Dosage: UNK, UNKNOWN
     Route: 065
     Dates: start: 20100506, end: 20100510
  2. ANTIBIOTICS [Concomitant]
     Indication: SEPSIS
     Dosage: UNK, UNK
     Dates: start: 20100501
  3. OXYGEN [Concomitant]
     Dates: start: 20100501

REACTIONS (1)
  - HYPOXIA [None]
